FAERS Safety Report 4904324-0 (Version None)
Quarter: 2006Q1

REPORT INFORMATION
  Report Type: 
  Country: None (occurrence: None)
  Receive Date: 20060208
  Receipt Date: 20050823
  Transmission Date: 20060701
  Serious: No
  Sender: FDA-Public Use
  Company Number: US-GLAXOSMITHKLINE-A0571463A

PATIENT
  Age: 49 Year
  Sex: Female

DRUGS (3)
  1. PAXIL [Suspect]
     Dosage: 10MG IN THE MORNING
     Route: 048
  2. PAROXETINE HCL [Suspect]
     Dosage: 10MG IN THE MORNING
     Route: 048
     Dates: start: 20050815
  3. VALIUM [Concomitant]

REACTIONS (3)
  - NAUSEA [None]
  - PRURITUS [None]
  - WEIGHT INCREASED [None]
